FAERS Safety Report 7909748-5 (Version None)
Quarter: 2011Q4

REPORT INFORMATION
  Report Type: 
  Country: None (occurrence: None)
  Receive Date: 20111111
  Receipt Date: 20111108
  Transmission Date: 20120403
  Serious: Yes (Other)
  Sender: FDA-Public Use
  Company Number: GB-ALLERGAN-1110630US

PATIENT
  Sex: Female

DRUGS (1)
  1. VISTABEL [Suspect]
     Indication: SKIN WRINKLING
     Dosage: 20 UNITS, SINGLE
     Route: 030
     Dates: start: 20110726, end: 20110726

REACTIONS (6)
  - HEADACHE [None]
  - NAUSEA [None]
  - PHARYNGEAL OEDEMA [None]
  - VIITH NERVE PARALYSIS [None]
  - LOCAL SWELLING [None]
  - PYREXIA [None]
